FAERS Safety Report 19155779 (Version 1)
Quarter: 2021Q2

REPORT INFORMATION
  Report Type: Report from Study
  Country: US (occurrence: US)
  Receive Date: 20210419
  Receipt Date: 20210419
  Transmission Date: 20210717
  Serious: Yes (Other)
  Sender: FDA-Public Use
  Company Number: US-JNJFOC-20210416194

PATIENT
  Age: 7 Decade
  Sex: Female

DRUGS (2)
  1. SPRAVATO [Suspect]
     Active Substance: ESKETAMINE
     Dosage: TOTAL 46 DOSES
     Dates: start: 20191118, end: 20210316
  2. SPRAVATO [Suspect]
     Active Substance: ESKETAMINE
     Indication: DEPRESSION
     Dosage: TOTAL TWO DOSES
     Dates: start: 20191112, end: 20191114

REACTIONS (7)
  - Brain neoplasm [Unknown]
  - Neoplasm malignant [Unknown]
  - Amnesia [Unknown]
  - Mental disorder [Unknown]
  - Product dose omission issue [Unknown]
  - Vertigo [Unknown]
  - Essential tremor [Unknown]
